FAERS Safety Report 4464071-9 (Version None)
Quarter: 2004Q3

REPORT INFORMATION
  Report Type: 
  Country: None (occurrence: None)
  Receive Date: 20040928
  Receipt Date: 20040928
  Transmission Date: 20050211
  Serious: No
  Sender: FDA-Public Use
  Company Number: None

PATIENT
  Sex: Male

DRUGS (1)
  1. PROHANCE [Suspect]
     Dosage: 15 ML   ONCE   INTRAVENOUS
     Route: 042
     Dates: start: 20040615, end: 20040615

REACTIONS (1)
  - HYPERSENSITIVITY [None]
